FAERS Safety Report 6254453-7 (Version None)
Quarter: 2009Q3

REPORT INFORMATION
  Report Type: 
  Country: None (occurrence: None)
  Receive Date: 20090701
  Receipt Date: 20090701
  Transmission Date: 20100115
  Serious: Yes (Death)
  Sender: FDA-Public Use
  Company Number: None

PATIENT
  Age: 50 Year
  Sex: Male
  Weight: 89.3586 kg

DRUGS (5)
  1. LITHIUM CARBONATE [Suspect]
     Indication: BIPOLAR DISORDER
     Dosage: 450 MG 3 X DAILY PO
     Route: 048
  2. XANAX [Concomitant]
  3. LOXAPINE [Concomitant]
  4. PROCHLORPERAZINE [Concomitant]
  5. MAGIC MOUTH WASH [Concomitant]

REACTIONS (3)
  - ENCEPHALOPATHY [None]
  - NEUROLEPTIC MALIGNANT SYNDROME [None]
  - THERAPEUTIC AGENT TOXICITY [None]
